FAERS Safety Report 8209984-7 (Version None)
Quarter: 2012Q1

REPORT INFORMATION
  Report Type: 
  Country: None (occurrence: None)
  Receive Date: 20120314
  Receipt Date: 20110901
  Transmission Date: 20120608
  Serious: No
  Sender: FDA-Public Use
  Company Number: US-ASTRAZENECA-2011SE53039

PATIENT
  Age: 52 Year
  Sex: Male

DRUGS (13)
  1. TOPROL-XL [Suspect]
     Route: 048
  2. ASCORBIC ACID [Concomitant]
  3. LOFIBRA [Concomitant]
  4. ATARAX [Concomitant]
  5. FISH OIL-OMEGA-3 FATTY ACIDS [Concomitant]
  6. LORTAB [Concomitant]
  7. IMDUR [Concomitant]
  8. PLAVIX [Concomitant]
  9. PRAVACHOL [Concomitant]
  10. PRILOSEC OTC [Suspect]
     Route: 048
  11. ELAVIL [Concomitant]
  12. ASPIRIN [Concomitant]
  13. B 12 SL [Concomitant]

REACTIONS (4)
  - BACK PAIN [None]
  - MUSCULOSKELETAL PAIN [None]
  - NECK PAIN [None]
  - PAIN IN EXTREMITY [None]
